FAERS Safety Report 4320822-5 (Version None)
Quarter: 2004Q1

REPORT INFORMATION
  Report Type: 
  Country: None (occurrence: None)
  Receive Date: 20040318
  Receipt Date: 20040309
  Transmission Date: 20041129
  Serious: Yes (Hospitalization, Disabling)
  Sender: FDA-Public Use
  Company Number: NLWYE390306NOV03

PATIENT
  Age: 44 Year
  Sex: Female

DRUGS (5)
  1. EFFEXOR XR [Suspect]
     Indication: DEPRESSION
     Dosage: 75 MG 1X PER 1 DAY; ORAL
     Route: 048
     Dates: start: 20030130, end: 20030201
  2. EFFEXOR XR [Suspect]
     Indication: FATIGUE
     Dosage: 75 MG 1X PER 1 DAY; ORAL
     Route: 048
     Dates: start: 20030130, end: 20030201
  3. EFFEXOR XR [Suspect]
     Dosage: 150 MG 1X PER 1 DAY; ORAL
     Route: 048
     Dates: start: 20030201, end: 20030101
  4. EFFEXOR XR [Suspect]
     Dosage: 187.5 MG 1X PER 1 DAY; ORAL
     Route: 048
     Dates: start: 20030101, end: 20030301
  5. NORTRILEN (NORTRIPTYLINE HYDROCHLORIDE) [Concomitant]

REACTIONS (8)
  - COORDINATION ABNORMAL [None]
  - GAIT DISTURBANCE [None]
  - HYPERHIDROSIS [None]
  - PAIN IN EXTREMITY [None]
  - SENSATION OF HEAVINESS [None]
  - TREMOR [None]
  - VISION BLURRED [None]
  - WEIGHT DECREASED [None]
